FAERS Safety Report 9345053 (Version 3)
Quarter: 2013Q3

REPORT INFORMATION
  Report Type: Report from Study
  Country: DE (occurrence: DE)
  Receive Date: 20130612
  Receipt Date: 20130712
  Transmission Date: 20140515
  Serious: Yes (Death)
  Sender: FDA-Public Use
  Company Number: DE-ABBOTT-13P-062-1103681-00

PATIENT
  Age: 80 Year
  Sex: Male

DRUGS (3)
  1. TRENANTONE [Suspect]
     Indication: PROSTATE CANCER
     Route: 058
     Dates: start: 20120221, end: 20121015
  2. ASS [Concomitant]
     Indication: PROPHYLAXIS
  3. PLETAL [Concomitant]
     Indication: PROPHYLAXIS

REACTIONS (2)
  - Metastases to central nervous system [Fatal]
  - Brain oedema [Fatal]
